FAERS Safety Report 4746165-3 (Version None)
Quarter: 2005Q3

REPORT INFORMATION
  Report Type: 
  Country: None (occurrence: None)
  Receive Date: 20050816
  Receipt Date: 20050801
  Transmission Date: 20060218
  Serious: Yes (Death, Other)
  Sender: FDA-Public Use
  Company Number: USA-2005-0020869

PATIENT
  Age: 42 Year
  Sex: Male

DRUGS (4)
  1. OXYCONTIN [Suspect]
     Indication: PAIN
     Dosage: 40 MG, Q12H
  2. NORCO [Suspect]
     Indication: PAIN
     Dosage: MG
  3. BENZODIAZEPINES ( ) [Suspect]
  4. ANTIHYPERTENSIVES [Concomitant]

REACTIONS (3)
  - ATRIAL FIBRILLATION [None]
  - DRUG TOXICITY [None]
  - MULTIPLE DRUG OVERDOSE [None]
